FAERS Safety Report 10248579 (Version 1)
Quarter: 2014Q2

REPORT INFORMATION
  Report Type: Report from Study
  Country: US (occurrence: US)
  Receive Date: 20140620
  Receipt Date: 20140620
  Transmission Date: 20141212
  Serious: Yes (Hospitalization, Other)
  Sender: FDA-Public Use
  Company Number: US-ALEXION-A201305331

PATIENT
  Sex: 0

DRUGS (2)
  1. SOLIRIS [Suspect]
     Indication: HAEMOLYTIC URAEMIC SYNDROME
     Dosage: UNK
     Route: 042
  2. ETHANOL [Concomitant]
     Indication: PRODUCT USED FOR UNKNOWN INDICATION
     Route: 065

REACTIONS (7)
  - Pancreatitis acute [Unknown]
  - Platelet count decreased [Unknown]
  - Renal failure acute [Unknown]
  - Blood lactate dehydrogenase increased [Unknown]
  - Face oedema [Unknown]
  - Headache [Unknown]
  - Exposure during pregnancy [Unknown]
